FAERS Safety Report 6894683-4 (Version None)
Quarter: 2010Q3

REPORT INFORMATION
  Report Type: 
  Country: None (occurrence: None)
  Receive Date: 20100727
  Receipt Date: 20100716
  Transmission Date: 20110219
  Serious: Yes (Hospitalization)
  Sender: FDA-Public Use
  Company Number: DSM-2010-01057

PATIENT
  Age: 77 Year
  Sex: Female

DRUGS (8)
  1. OLMESARTAN MEDOXOMIL [Suspect]
     Indication: HYPERTENSION
     Dosage: 40 MG (40 MG, 1 IN 1 D), ORAL
     Route: 048
  2. BISOPROLOL FUMARATE [Suspect]
     Indication: HYPERTENSION
     Dosage: 3.75 MG (3.75 MG, 1 IN 1 D), ORAL
     Route: 048
  3. NIASPAN [Suspect]
     Indication: DYSLIPIDAEMIA
     Dosage: 375 MG (375 MG, 1 IN 1 D), ORAL
     Route: 048
     Dates: start: 20100430, end: 20100615
  4. RIVOTRIL (CLONAZEPAM) (CLONAZEPAM) [Concomitant]
  5. MODOPAR (LEVODOPA, BENSERAZIDE HYDROCHLORIDE) (LEVODOPA, BENSERAZIDE H [Concomitant]
  6. SIMVASTATINE (SIMVASTATIN) (SIMVASTATIN) [Concomitant]
  7. ZOLPIDEM TARTRATE (ZOLPIDEM TARTRATE) (ZOLPIDEM TARTRATE) [Concomitant]
  8. PLAVIX (CLOPIDOGREL) (CLOPIDOGREL) [Concomitant]

REACTIONS (6)
  - ABDOMINAL PAIN [None]
  - DEHYDRATION [None]
  - DIARRHOEA [None]
  - HYPERKALAEMIA [None]
  - RENAL FAILURE ACUTE [None]
  - WEIGHT DECREASED [None]
